FAERS Safety Report 20715574 (Version 1)
Quarter: 2022Q2

REPORT INFORMATION
  Report Type: Spontaneous
  Country: DK (occurrence: DK)
  Receive Date: 20220415
  Receipt Date: 20220415
  Transmission Date: 20220721
  Serious: Yes (Hospitalization)
  Sender: FDA-Public Use
  Company Number: None

PATIENT
  Age: 83 Year
  Sex: Female

DRUGS (2)
  1. ALTEPLASE [Suspect]
     Active Substance: ALTEPLASE
     Indication: Ischaemic cerebral infarction
     Dosage: STRENGTH: UNKNOWN , FORM OF ADMIN: POWDER AND SOLVENT FOR SOLUTION
     Route: 042
     Dates: start: 20220330, end: 20220330
  2. ALTEPLASE [Suspect]
     Active Substance: ALTEPLASE
     Dosage: STRENGTH: UNKNOWN,  FORM OF ADMIN: POWDER AND SOLVENT FOR SOLUTION
     Route: 042
     Dates: start: 20220330, end: 20220330

REACTIONS (2)
  - Depressed level of consciousness [Not Recovered/Not Resolved]
  - Intraventricular haemorrhage [Not Recovered/Not Resolved]

NARRATIVE: CASE EVENT DATE: 20220331
